FAERS Safety Report 17505603 (Version 1)
Quarter: 2020Q1

REPORT INFORMATION
  Report Type: Spontaneous
  Country: US (occurrence: US)
  Receive Date: 20200305
  Receipt Date: 20200305
  Transmission Date: 20200409
  Serious: Yes (Other)
  Sender: FDA-Public Use
  Company Number: US-PFIZER INC-2020096127

PATIENT
  Age: 87 Year
  Sex: Male

DRUGS (5)
  1. LIPITOR [Suspect]
     Active Substance: ATORVASTATIN CALCIUM
     Dosage: 10 MG, DAILY
  2. GLIPIZIDE. [Concomitant]
     Active Substance: GLIPIZIDE
     Dosage: 5 MG, 1X/DAY
  3. PROPRANOLOL [Concomitant]
     Active Substance: PROPRANOLOL HYDROCHLORIDE
     Dosage: 120 MG, DAILY
  4. LIPITOR [Suspect]
     Active Substance: ATORVASTATIN CALCIUM
     Dosage: 20 MG, 1X/DAY
  5. LISINOPRIL. [Concomitant]
     Active Substance: LISINOPRIL
     Dosage: 5 MG, DAILY

REACTIONS (2)
  - Hypoacusis [Unknown]
  - Thrombosis [Unknown]
